FAERS Safety Report 6337431-9 (Version None)
Quarter: 2009Q3

REPORT INFORMATION
  Report Type: 
  Country: None (occurrence: None)
  Receive Date: 20090902
  Receipt Date: 20090825
  Transmission Date: 20100115
  Serious: Yes (Other)
  Sender: FDA-Public Use
  Company Number: JP-JNJFOC-20090900199

PATIENT
  Age: 34 Year
  Sex: Male

DRUGS (5)
  1. RISPERDAL [Suspect]
     Indication: DRUG USE FOR UNKNOWN INDICATION
     Route: 048
  2. DEPAS [Concomitant]
     Route: 048
  3. CONTOMIN [Concomitant]
     Route: 048
  4. HIRNAMIN (LEVOPROMAZINE MALEATE) [Concomitant]
     Route: 048
  5. NITRAZEPAM [Concomitant]
     Route: 048

REACTIONS (1)
  - HYPERTENSION [None]
